FAERS Safety Report 16733674 (Version 2)
Quarter: 2019Q3

REPORT INFORMATION
  Report Type: Other
  Country: IT (occurrence: IT)
  Receive Date: 20190823
  Receipt Date: 20190905
  Transmission Date: 20191005
  Serious: Yes (Other)
  Sender: FDA-Public Use
  Company Number: IT-TECHNOMED INC.-2073556

PATIENT
  Age: 38 Year
  Sex: Female

DRUGS (4)
  1. NIFEDIPINE. [Concomitant]
     Active Substance: NIFEDIPINE
  2. LOW MOLECULAR WEIGHT (LMW) HEPARIN [Concomitant]
  3. CATAPRES-TTS [Suspect]
     Active Substance: CLONIDINE
     Indication: HYPEREMESIS GRAVIDARUM
     Route: 062
  4. ACETYLSALICYLIC ACID [Concomitant]
     Active Substance: ASPIRIN

REACTIONS (2)
  - Off label use [Unknown]
  - Foetal death [Unknown]
